FAERS Safety Report 5843104-9 (Version None)
Quarter: 2008Q3

REPORT INFORMATION
  Report Type: 
  Country: None (occurrence: None)
  Receive Date: 20080812
  Receipt Date: 20080812
  Transmission Date: 20090109
  Serious: Yes (Hospitalization)
  Sender: FDA-Public Use
  Company Number: None

PATIENT
  Age: 88 Year
  Sex: Male

DRUGS (2)
  1. WARFARIN SODIUM [Suspect]
     Dosage: 5MG Q2DAYS PO
     Route: 048
  2. WARFARIN SODIUM [Suspect]
     Dosage: 2 MG Q2DAYS PO
     Route: 048

REACTIONS (1)
  - EPISTAXIS [None]
